FAERS Safety Report 9796041 (Version 2)
Quarter: 2014Q1

REPORT INFORMATION
  Report Type: Spontaneous
  Country: SE (occurrence: SE)
  Receive Date: 20140103
  Receipt Date: 20140313
  Transmission Date: 20141002
  Serious: Yes (Other)
  Sender: FDA-Public Use
  Company Number: SE-PFIZER INC-2013371574

PATIENT
  Age: 47 Year
  Sex: Male
  Weight: 98 kg

DRUGS (1)
  1. XALATAN [Suspect]
     Indication: GLAUCOMA
     Dosage: STRENGTH 50 UG/ML, ONE DROP, LEFT EYE
     Route: 047
     Dates: start: 20130325, end: 20130327

REACTIONS (3)
  - Dyspnoea [Recovered/Resolved]
  - Heart rate increased [Recovered/Resolved]
  - Eye irritation [Recovered/Resolved]
